FAERS Safety Report 17451810 (Version 3)
Quarter: 2020Q1

REPORT INFORMATION
  Report Type: Spontaneous
  Country: ES (occurrence: ES)
  Receive Date: 20200224
  Receipt Date: 20200327
  Transmission Date: 20200409
  Serious: Yes (Other)
  Sender: FDA-Public Use
  Company Number: ES-PFIZER INC-2020075213

PATIENT
  Age: 77 Year
  Sex: Male

DRUGS (3)
  1. DOXAZOSIN [Concomitant]
     Active Substance: DOXAZOSIN MESYLATE
     Indication: HYPERTENSION
     Dosage: 0.5 DF, DAILY  (HALF TABLET DAILY)
     Route: 048
  2. CELESTONE CRONODOSE [Suspect]
     Active Substance: BETAMETHASONE
     Indication: TENDON RUPTURE
     Dosage: 2 ML, UNK
     Dates: start: 20200110, end: 20200110
  3. CELECOXIB. [Suspect]
     Active Substance: CELECOXIB
     Indication: TENDON RUPTURE
     Dosage: 7 DF, UNK (7 DF)
     Route: 048
     Dates: start: 202001, end: 202001

REACTIONS (13)
  - Blood pressure abnormal [Recovered/Resolved]
  - Nasopharyngitis [Recovered/Resolved]
  - Eye irritation [Recovered/Resolved]
  - Drug ineffective [Not Recovered/Not Resolved]
  - Blood pressure increased [Recovered/Resolved]
  - Ocular hyperaemia [Recovered/Resolved]
  - Musculoskeletal pain [Not Recovered/Not Resolved]
  - Asthenopia [Recovered/Resolved]
  - Glaucoma [Unknown]
  - Eye pain [Recovered/Resolved]
  - Headache [Recovered/Resolved]
  - Ocular discomfort [Recovered/Resolved]
  - Intraocular pressure increased [Not Recovered/Not Resolved]

NARRATIVE: CASE EVENT DATE: 202001
